FAERS Safety Report 14808962 (Version 1)
Quarter: 2018Q2

REPORT INFORMATION
  Report Type: Spontaneous
  Country: CA (occurrence: CA)
  Receive Date: 20180425
  Receipt Date: 20180425
  Transmission Date: 20180711
  Serious: Yes (Other)
  Sender: FDA-Public Use
  Company Number: CA-BAUSCH-BL-2018-003436

PATIENT
  Age: 50 Year
  Sex: Female

DRUGS (1)
  1. ZYCLARA [Suspect]
     Active Substance: IMIQUIMOD
     Indication: ACTINIC KERATOSIS
     Dosage: FOR ABOUT 2 WEEKS
     Route: 061
     Dates: start: 20180111, end: 20180123

REACTIONS (7)
  - Road traffic accident [Recovering/Resolving]
  - Feeding disorder [Recovering/Resolving]
  - Oral pain [Recovering/Resolving]
  - Vision blurred [Recovering/Resolving]
  - Weight decreased [Recovering/Resolving]
  - Lip blister [Recovering/Resolving]
  - Visual impairment [Recovering/Resolving]

NARRATIVE: CASE EVENT DATE: 201801
